FAERS Safety Report 20644178 (Version 1)
Quarter: 2022Q1

REPORT INFORMATION
  Report Type: Spontaneous
  Country: US (occurrence: None)
  Receive Date: 20220326
  Receipt Date: 20220326
  Transmission Date: 20220423
  Serious: No
  Sender: FDA-Public Use
  Company Number: None

PATIENT
  Age: 57 Year
  Sex: Male

DRUGS (1)
  1. COSENTYX [Suspect]
     Active Substance: SECUKINUMAB
     Dosage: OTHER FREQUENCY : N/A;?
     Route: 058
     Dates: start: 202202, end: 20220326

REACTIONS (2)
  - Product prescribing issue [None]
  - T-cell lymphoma [None]

NARRATIVE: CASE EVENT DATE: 20220326
